FAERS Safety Report 24600530 (Version 2)
Quarter: 2024Q4

REPORT INFORMATION
  Report Type: Spontaneous
  Country: US (occurrence: US)
  Receive Date: 20241110
  Receipt Date: 20241202
  Transmission Date: 20250115
  Serious: No
  Sender: ROCHE
  Company Number: US-ROCHE-10000124676

PATIENT
  Sex: Male
  Weight: 74.38 kg

DRUGS (1)
  1. RITUXAN [Suspect]
     Active Substance: RITUXIMAB
     Indication: Cold type haemolytic anaemia
     Route: 042

REACTIONS (3)
  - Off label use [Unknown]
  - Hypertension [Unknown]
  - Blood cholesterol increased [Unknown]
